FAERS Safety Report 9564524 (Version 1)
Quarter: 2013Q3

REPORT INFORMATION
  Report Type: Spontaneous
  Country: US (occurrence: US)
  Receive Date: 20130930
  Receipt Date: 20130930
  Transmission Date: 20140515
  Serious: No
  Sender: FDA-Public Use
  Company Number: US-GLAXOSMITHKLINE-A0991814A

PATIENT
  Age: 8 Year
  Sex: Female

DRUGS (4)
  1. LAMICTAL [Suspect]
     Indication: CONVULSION
     Dosage: 5MG EIGHT TIMES PER DAY
     Route: 048
     Dates: start: 20120831
  2. KEPPRA [Concomitant]
  3. TRILEPTAL [Concomitant]
  4. ADDERALL [Concomitant]

REACTIONS (8)
  - Eye disorder [Unknown]
  - Flushing [Unknown]
  - Erythema [Unknown]
  - Erythema [Unknown]
  - Erythema [Unknown]
  - Miliaria [Unknown]
  - Miliaria [Unknown]
  - Abdominal pain upper [Unknown]
